FAERS Safety Report 8165562-X (Version None)
Quarter: 2012Q1

REPORT INFORMATION
  Report Type: 
  Country: None (occurrence: None)
  Receive Date: 20120223
  Receipt Date: 20120223
  Transmission Date: 20120608
  Serious: Yes (Death, Life-Threatening, Hospitalization, Other)
  Sender: FDA-Public Use
  Company Number: None

PATIENT
  Sex: Male

DRUGS (1)
  1. PRADAXA [Suspect]
     Dosage: 1 DAILY
     Dates: start: 20111201, end: 20120129

REACTIONS (6)
  - BLINDNESS [None]
  - CEREBROVASCULAR ACCIDENT [None]
  - FREQUENT BOWEL MOVEMENTS [None]
  - APHONIA [None]
  - SPEECH DISORDER [None]
  - CEREBRAL HAEMORRHAGE [None]
